FAERS Safety Report 10046234 (Version 1)
Quarter: 2014Q1

REPORT INFORMATION
  Report Type: Spontaneous
  Country: US (occurrence: None)
  Receive Date: 20140227
  Receipt Date: 20140227
  Transmission Date: 20141002
  Serious: Yes (Hospitalization, Other)
  Sender: FDA-Public Use
  Company Number: 14-00291

PATIENT
  Age: 42 Year
  Sex: Female
  Weight: 65.32 kg

DRUGS (3)
  1. ALBUTEROL SULFATE INHALATION SOLUTION [Suspect]
     Indication: ASTHMA
     Dosage: 1 VIAL PRN?
     Dates: start: 201310
  2. MULTIVITAMIN [Concomitant]
  3. SINGULAIR (MONTELUKAST) 10MG [Concomitant]

REACTIONS (2)
  - Dyspnoea [None]
  - Asthma [None]
